FAERS Safety Report 7991746-7 (Version None)
Quarter: 2011Q4

REPORT INFORMATION
  Report Type: 
  Country: None (occurrence: None)
  Receive Date: 20111219
  Receipt Date: 20111205
  Transmission Date: 20120403
  Serious: Yes (Other)
  Sender: FDA-Public Use
  Company Number: PHEH2011US05062

PATIENT
  Sex: Female
  Weight: 62.1 kg

DRUGS (17)
  1. GLEEVEC [Suspect]
     Dosage: UNK
     Dates: start: 20110601
  2. ALLEGRA [Concomitant]
     Dosage: 180 MG, PRN
     Route: 048
  3. OXEDRINE [Concomitant]
     Dosage: UNK UKN, QD
     Route: 048
  4. VITAMINE D3 [Concomitant]
     Dosage: 2000 U, DAILY
  5. AMOXIL [Concomitant]
  6. OS-CAL [Concomitant]
     Dosage: UNK UKN, BID
  7. PROBIOTICA [Concomitant]
     Dosage: UNK UKN, DAILY
  8. FLUTICASONE PROPIONATE [Concomitant]
     Dosage: 1 DF, BID
  9. PERCOCET [Concomitant]
     Dosage: 1 DF, PRN DAILY
  10. GLEEVEC [Suspect]
     Dosage: 400 MG, QD
     Route: 048
     Dates: end: 20110628
  11. GLEEVEC [Suspect]
     Dosage: 200 MG, DAILY
     Route: 048
     Dates: start: 20110720
  12. ATIVAN [Concomitant]
     Dosage: UNK UKN, QD
     Route: 048
  13. CALCIUM [Concomitant]
  14. LORAZEPAM [Concomitant]
     Dosage: 1 MG IN MORNING AND 2MG IN QHS
  15. SODIUM BICARBONATE [Concomitant]
     Dosage: 2 DF, DAILY
  16. GLEEVEC [Suspect]
     Indication: GASTROINTESTINAL STROMAL TUMOUR
     Dosage: UNK
     Dates: start: 20031101, end: 20080201
  17. OSCAL [Concomitant]
     Dosage: UNK UKN, QD
     Route: 048

REACTIONS (19)
  - RENAL ARTERIOSCLEROSIS [None]
  - STRESS [None]
  - ENTEROCUTANEOUS FISTULA [None]
  - MINERAL METABOLISM DISORDER [None]
  - FATIGUE [None]
  - RENAL TUBULAR NECROSIS [None]
  - SINUSITIS [None]
  - URTICARIA [None]
  - UTERINE LEIOMYOMA [None]
  - RENAL FAILURE [None]
  - DIARRHOEA [None]
  - HYDRONEPHROSIS [None]
  - ANAEMIA [None]
  - BONE DISORDER [None]
  - METASTATIC NEOPLASM [None]
  - OEDEMA [None]
  - SWELLING [None]
  - HYPERSENSITIVITY [None]
  - DEHYDRATION [None]
